FAERS Safety Report 6686437-9 (Version None)
Quarter: 2010Q2

REPORT INFORMATION
  Report Type: 
  Country: None (occurrence: None)
  Receive Date: 20100419
  Receipt Date: 20100409
  Transmission Date: 20101027
  Serious: Yes (Hospitalization)
  Sender: FDA-Public Use
  Company Number: B0642947A

PATIENT
  Sex: Female

DRUGS (1)
  1. AVAMYS [Suspect]
     Indication: DRUG USE FOR UNKNOWN INDICATION
     Dosage: 2SPR PER DAY
     Route: 065

REACTIONS (13)
  - ANAPHYLACTIC SHOCK [None]
  - BLEPHAROSPASM [None]
  - CIRCULATORY COLLAPSE [None]
  - DIZZINESS [None]
  - DRUG ADMINISTRATION ERROR [None]
  - ELEVATED MOOD [None]
  - FACE OEDEMA [None]
  - HYPERVENTILATION [None]
  - HYPOAESTHESIA FACIAL [None]
  - HYPOAESTHESIA ORAL [None]
  - HYPOTENSION [None]
  - LARYNGEAL OEDEMA [None]
  - NAUSEA [None]
